FAERS Safety Report 17830567 (Version 3)
Quarter: 2020Q2

REPORT INFORMATION
  Report Type: Spontaneous
  Country: US (occurrence: US)
  Receive Date: 20200527
  Receipt Date: 20200625
  Transmission Date: 20200714
  Serious: No
  Sender: FDA-Public Use
  Company Number: US-JNJFOC-20200524028

PATIENT
  Age: 62 Year
  Sex: Male
  Weight: 63.56 kg

DRUGS (2)
  1. SIMPONI [Suspect]
     Active Substance: GOLIMUMAB
     Indication: ANKYLOSING SPONDYLITIS
     Route: 058
     Dates: start: 201902
  2. METHOTREXATE. [Concomitant]
     Active Substance: METHOTREXATE
     Indication: PRODUCT USED FOR UNKNOWN INDICATION

REACTIONS (5)
  - Injection site haemorrhage [Unknown]
  - Underdose [Unknown]
  - Drug delivery system malfunction [Unknown]
  - Device deployment issue [Unknown]
  - Device issue [Unknown]

NARRATIVE: CASE EVENT DATE: 20200519
